FAERS Safety Report 22396835 (Version 1)
Quarter: 2023Q2

REPORT INFORMATION
  Report Type: Spontaneous
  Country: US (occurrence: US)
  Receive Date: 20230601
  Receipt Date: 20230601
  Transmission Date: 20230722
  Serious: No
  Sender: FDA-Public Use
  Company Number: US-ACADIA PHARMACEUTICALS INC.-ACA-2023-PIM-002093

PATIENT
  Age: 62 Year
  Sex: Male

DRUGS (12)
  1. NUPLAZID [Suspect]
     Active Substance: PIMAVANSERIN TARTRATE
     Dosage: 34 MILLIGRAM, QD
     Route: 065
  2. CLOZAPINE [Concomitant]
     Active Substance: CLOZAPINE
     Indication: Agitation
     Dosage: 12.5 MG/DAY
  3. CLOZAPINE [Concomitant]
     Active Substance: CLOZAPINE
     Indication: Aggression
  4. PAROXETINE [Concomitant]
     Active Substance: PAROXETINE
     Indication: Behaviour disorder
     Dosage: 20 MILLIGRAM, QD
  5. PAROXETINE [Concomitant]
     Active Substance: PAROXETINE
     Indication: Frontotemporal dementia
  6. TIAPRIDE [Concomitant]
     Active Substance: TIAPRIDE
  7. CARBAMAZEPINE [Concomitant]
     Active Substance: CARBAMAZEPINE
  8. TRAZODONE [Concomitant]
     Active Substance: TRAZODONE HYDROCHLORIDE
     Dosage: 100 MILLIGRAM, QD
  9. TRAZODONE [Concomitant]
     Active Substance: TRAZODONE HYDROCHLORIDE
     Dosage: 200 MILLIGRAM, QD
  10. CHLORPROMAZINE [Concomitant]
     Active Substance: CHLORPROMAZINE
     Indication: Extradural haematoma
     Dosage: 10 MILLIGRAM, QD IN THE EVENING
  11. OXAZEPAM [Concomitant]
     Active Substance: OXAZEPAM
     Indication: Insomnia
     Dosage: 50 MILLIGRAM, QD
  12. MELATONIN [Concomitant]
     Active Substance: MELATONIN
     Indication: Insomnia
     Dosage: 12 MILLIGRAM, QD

REACTIONS (1)
  - Drug effective for unapproved indication [Unknown]
